FAERS Safety Report 5392512-1 (Version None)
Quarter: 2007Q3

REPORT INFORMATION
  Report Type: 
  Country: None (occurrence: None)
  Receive Date: 20070720
  Receipt Date: 20070716
  Transmission Date: 20080115
  Serious: Yes (Hospitalization, Other)
  Sender: FDA-Public Use
  Company Number: FR-BRISTOL-MYERS SQUIBB COMPANY-13848726

PATIENT
  Age: 49 Year
  Sex: Male
  Weight: 52 kg

DRUGS (9)
  1. VIDEX [Suspect]
     Indication: HIV INFECTION
     Route: 048
     Dates: start: 19980401, end: 20061209
  2. ZERIT [Suspect]
     Indication: HIV INFECTION
     Route: 048
     Dates: start: 19980401, end: 20061209
  3. KALETRA [Suspect]
     Indication: HIV INFECTION
     Dates: start: 20070415, end: 20070613
  4. KIVEXA [Suspect]
     Indication: HIV INFECTION
     Dates: start: 20070415, end: 20070613
  5. VIRACEPT [Suspect]
     Indication: HIV INFECTION
     Dates: start: 19980401, end: 20061209
  6. BACTRIM [Concomitant]
     Indication: PROPHYLAXIS
  7. LIPANTHYL [Concomitant]
  8. RIVOTRIL [Concomitant]
  9. LAROXYL [Concomitant]
     Indication: NEUROPATHY

REACTIONS (7)
  - DIABETES MELLITUS [None]
  - LACTIC ACIDOSIS [None]
  - NAUSEA [None]
  - PANCREATITIS ACUTE [None]
  - SPEECH DISORDER [None]
  - VOMITING [None]
  - WEIGHT DECREASED [None]
